FAERS Safety Report 17775078 (Version 1)
Quarter: 2020Q2

REPORT INFORMATION
  Report Type: Spontaneous
  Country: US (occurrence: US)
  Receive Date: 20200512
  Receipt Date: 20200512
  Transmission Date: 20200714
  Serious: No
  Sender: FDA-Public Use
  Company Number: None

PATIENT
  Age: 60 Year
  Sex: Female
  Weight: 75.6 kg

DRUGS (2)
  1. ZYRTEC [Concomitant]
     Active Substance: CETIRIZINE HYDROCHLORIDE
  2. FAMOTIDINE. GENERIC FOR PEPCID [Suspect]
     Active Substance: FAMOTIDINE
     Indication: GASTRITIS
     Route: 048
     Dates: start: 20200507, end: 20200510

REACTIONS (5)
  - Flushing [None]
  - Throat tightness [None]
  - Urticaria [None]
  - Dysphagia [None]
  - Hypersensitivity [None]

NARRATIVE: CASE EVENT DATE: 20200507
